FAERS Safety Report 7048088-6 (Version None)
Quarter: 2010Q4

REPORT INFORMATION
  Report Type: 
  Country: None (occurrence: None)
  Receive Date: 20101015
  Receipt Date: 20101005
  Transmission Date: 20110411
  Serious: Yes (Other)
  Sender: FDA-Public Use
  Company Number: GB-ABBOTT-10P-167-0644038-00

PATIENT
  Age: 51 Year
  Sex: Male

DRUGS (9)
  1. RITONAVIR [Suspect]
     Indication: HIV INFECTION
     Route: 048
     Dates: start: 20100101
  2. DARUNAVIR [Suspect]
     Indication: HIV INFECTION
     Route: 048
     Dates: start: 20100125
  3. ETRAVIRINE [Suspect]
     Indication: HIV INFECTION
     Route: 048
     Dates: start: 20100125
  4. FLUCONAZOLE [Concomitant]
     Indication: PRODUCT USED FOR UNKNOWN INDICATION
  5. ATORVASTATIN [Concomitant]
     Indication: BLOOD CHOLESTEROL DECREASED
     Dates: start: 20040212
  6. EZETIMIBE [Concomitant]
     Indication: HYPERLIPIDAEMIA
     Dates: start: 20090501
  7. STEROIDS NOS [Interacting]
     Indication: PRODUCT USED FOR UNKNOWN INDICATION
  8. ZOPICLONE [Concomitant]
     Indication: INSOMNIA
     Dates: start: 20100223
  9. COTRIM [Concomitant]
     Indication: PROPHYLAXIS
     Dates: start: 20100311

REACTIONS (6)
  - ABDOMINAL DISTENSION [None]
  - ADDISON'S DISEASE [None]
  - BLOOD TESTOSTERONE DECREASED [None]
  - CD4 LYMPHOCYTES DECREASED [None]
  - HYPOTHALAMO-PITUITARY DISORDER [None]
  - SECONDARY ADRENOCORTICAL INSUFFICIENCY [None]
